FAERS Safety Report 18315501 (Version 1)
Quarter: 2020Q3

REPORT INFORMATION
  Report Type: Report from Study
  Country: IT (occurrence: IT)
  Receive Date: 20200926
  Receipt Date: 20200926
  Transmission Date: 20201103
  Serious: Yes (Other)
  Sender: FDA-Public Use
  Company Number: IT-TEVA-2020-IT-1831620

PATIENT
  Age: 54 Year
  Sex: Male
  Weight: 67 kg

DRUGS (3)
  1. OXALIPLATINO TEVA 5 MG / ML, CONCENTRATO PER SOLUZIONE PER INFUSIONE. [Suspect]
     Active Substance: OXALIPLATIN
     Indication: TESTICULAR NEOPLASM
     Dosage: 236.6 MG
     Route: 042
     Dates: start: 20200724, end: 20200724
  2. PACLITAXEL TEVA ITALIA [Suspect]
     Active Substance: PACLITAXEL
     Indication: TESTICULAR NEOPLASM
     Dosage: 145.6 MG
     Route: 042
     Dates: start: 20200724, end: 20200731
  3. GEMSOL [Suspect]
     Active Substance: GEMCITABINE HYDROCHLORIDE
     Indication: TESTICULAR NEOPLASM
     Dosage: 1456 MG
     Route: 042
     Dates: start: 20200724, end: 20200731

REACTIONS (1)
  - Pancytopenia [Recovering/Resolving]

NARRATIVE: CASE EVENT DATE: 20200807
